FAERS Safety Report 23977518 (Version 1)
Quarter: 2024Q2

REPORT INFORMATION
  Report Type: Report from Study
  Country: US (occurrence: None)
  Receive Date: 20240614
  Receipt Date: 20240614
  Transmission Date: 20240716
  Serious: Yes (Other)
  Sender: FDA-Public Use
  Company Number: 2024A134294

PATIENT
  Sex: Female
  Weight: 78.9 kg

DRUGS (27)
  1. CALQUENCE [Suspect]
     Active Substance: ACALABRUTINIB
     Indication: Chronic lymphocytic leukaemia
     Route: 048
     Dates: start: 20220118
  2. ACYCLOVIR [Concomitant]
     Active Substance: ACYCLOVIR
  3. TIMOLOL [Concomitant]
     Active Substance: TIMOLOL
  4. LATANOPROST [Concomitant]
     Active Substance: LATANOPROST
  5. WOMENS 50PLUS MULTIVITAMIN [Concomitant]
  6. VITAMIN D3 [Concomitant]
     Active Substance: CHOLECALCIFEROL
  7. VITALINE COQ10 [Concomitant]
  8. ALENDRONATE [Concomitant]
     Active Substance: ALENDRONATE SODIUM
  9. CALCIUM [Concomitant]
     Active Substance: CALCIUM
  10. MIRALAX [Concomitant]
     Active Substance: POLYETHYLENE GLYCOL 3350
  11. VITAMIN C [Concomitant]
     Active Substance: ASCORBIC ACID
  12. VITAMIN B COMPLEX [Concomitant]
     Active Substance: CYANOCOBALAMIN\DEXPANTHENOL\NIACINAMIDE\PYRIDOXINE HYDROCHLORIDE\RIBOFLAVIN 5^-PHOSPHATE SODIUM\THIA
  13. PEPCID [Concomitant]
     Active Substance: FAMOTIDINE
  14. POLYMYXIN B [Concomitant]
     Active Substance: POLYMYXIN B
  15. PREDNISOLONE [Concomitant]
     Active Substance: PREDNISOLONE
  16. DORZOLAMIDE [Concomitant]
     Active Substance: DORZOLAMIDE
  17. ESTRADIOL [Concomitant]
     Active Substance: ESTRADIOL
  18. BIOTENE NOS [Concomitant]
     Active Substance: CETYLPYRIDINIUM CHLORIDE OR SODIUM FLUORIDE OR SODIUM MONOFLUOROPHOSPHATE OR GLUCOSE OXIDASE\LACTOFE
  19. POTASSIUM [Concomitant]
     Active Substance: POTASSIUM
  20. POTASSIUM [Concomitant]
     Active Substance: POTASSIUM
  21. KETOROLAC [Concomitant]
     Active Substance: KETOROLAC TROMETHAMINE
  22. OFLOXACIN [Concomitant]
     Active Substance: OFLOXACIN
  23. VITAMIN B [Concomitant]
     Active Substance: VITAMIN B
  24. ZETIA [Concomitant]
     Active Substance: EZETIMIBE
  25. MUCINEX [Concomitant]
     Active Substance: GUAIFENESIN
  26. ROBITUSSIN (GUAIFENESIN) [Concomitant]
     Active Substance: GUAIFENESIN
  27. HYDROCHLOROTHIAZIDE\VALSARTAN [Concomitant]
     Active Substance: HYDROCHLOROTHIAZIDE\VALSARTAN

REACTIONS (2)
  - Benign neoplasm of thyroid gland [Unknown]
  - Product dose omission issue [Unknown]
